FAERS Safety Report 16120250 (Version 1)
Quarter: 2019Q1

REPORT INFORMATION
  Report Type: Spontaneous
  Country: MY (occurrence: MY)
  Receive Date: 20190326
  Receipt Date: 20190326
  Transmission Date: 20190418
  Serious: Yes (Other)
  Sender: FDA-Public Use
  Company Number: MY-TAKEDA-2019TUS015757

PATIENT
  Age: 30 Year
  Sex: Male

DRUGS (9)
  1. ICLUSIG [Suspect]
     Active Substance: PONATINIB
     Indication: CHRONIC MYELOID LEUKAEMIA
     Dosage: 45 MILLIGRAM, QD
     Route: 048
     Dates: start: 20181027
  2. ICLUSIG [Suspect]
     Active Substance: PONATINIB
     Dosage: 30 MILLIGRAM, QD
     Route: 048
     Dates: start: 20181212
  3. ICLUSIG [Suspect]
     Active Substance: PONATINIB
     Dosage: 45 MILLIGRAM, QD
     Route: 048
     Dates: start: 20190228
  4. ALLOPURINOL. [Concomitant]
     Active Substance: ALLOPURINOL
     Dosage: 300 MILLIGRAM, QD
  5. CALCIUM CARBONATE. [Concomitant]
     Active Substance: CALCIUM CARBONATE
     Dosage: 1.5 GRAM
  6. TENOFOVIR [Concomitant]
     Active Substance: TENOFOVIR
     Dosage: 300 MILLIGRAM, QD
  7. CALCIUM CARBONATE. [Concomitant]
     Active Substance: CALCIUM CARBONATE
     Dosage: 1 GRAM
  8. RANITIDINE. [Concomitant]
     Active Substance: RANITIDINE
     Dosage: 150 MILLIGRAM, BID
  9. TRAMAL [Concomitant]
     Active Substance: TRAMADOL
     Dosage: 50 MILLIGRAM

REACTIONS (4)
  - Ejection fraction decreased [Unknown]
  - Neoplasm progression [Unknown]
  - Acute coronary syndrome [Unknown]
  - Pain [Unknown]

NARRATIVE: CASE EVENT DATE: 20181212
